FAERS Safety Report 23676392 (Version 7)
Quarter: 2025Q2

REPORT INFORMATION
  Report Type: Report from Study
  Country: US (occurrence: US)
  Receive Date: 20240327
  Receipt Date: 20250609
  Transmission Date: 20250717
  Serious: Yes (Hospitalization, Other)
  Sender: TAKEDA
  Company Number: US-TAKEDA-2023TUS121262

PATIENT
  Sex: Female

DRUGS (3)
  1. MARIBAVIR [Suspect]
     Active Substance: MARIBAVIR
     Indication: Cytomegalovirus infection
     Dosage: 400 MILLIGRAM, BID
     Dates: start: 20231218, end: 20240413
  2. MARIBAVIR [Suspect]
     Active Substance: MARIBAVIR
     Dosage: 400 MILLIGRAM, BID
     Dates: start: 20241206
  3. MARIBAVIR [Suspect]
     Active Substance: MARIBAVIR
     Dosage: 400 MILLIGRAM, BID
     Dates: start: 20241213, end: 20250514

REACTIONS (5)
  - Cytomegalovirus infection reactivation [Unknown]
  - Fall [Unknown]
  - Hip fracture [Unknown]
  - Malaise [Unknown]
  - Drug ineffective [Unknown]
